FAERS Safety Report 10159383 (Version 1)
Quarter: 2014Q2

REPORT INFORMATION
  Report Type: Spontaneous
  Country: US (occurrence: US)
  Receive Date: 20140508
  Receipt Date: 20140508
  Transmission Date: 20141212
  Serious: No
  Sender: FDA-Public Use
  Company Number: US-MYLANLABS-2014S1001428

PATIENT
  Age: 51 Year
  Sex: Male
  Weight: 78.02 kg

DRUGS (5)
  1. MODAFINIL TABLETS USP [Suspect]
     Indication: SOMNOLENCE
     Dosage: 100 MG QAM AND 100 MG QPM
     Route: 048
  2. TYSABRI [Suspect]
     Indication: MULTIPLE SCLEROSIS
     Route: 042
     Dates: start: 201401
  3. OXYCODONE [Concomitant]
     Route: 048
  4. GABAPENTIN [Concomitant]
     Route: 048
  5. FENOFIBRATE [Concomitant]
     Indication: BLOOD CHOLESTEROL INCREASED
     Route: 048

REACTIONS (4)
  - Drug ineffective [Recovered/Resolved]
  - Sedation [Recovered/Resolved]
  - Hypersomnia [Recovered/Resolved]
  - Fatigue [Not Recovered/Not Resolved]
